FAERS Safety Report 5014115-0 (Version None)
Quarter: 2006Q2

REPORT INFORMATION
  Report Type: 
  Country: None (occurrence: None)
  Receive Date: 20060414
  Receipt Date: 20060202
  Transmission Date: 20061013
  Serious: No
  Sender: FDA-Public Use
  Company Number: 2006SP000595

PATIENT
  Age: 71 Year
  Sex: Female
  Weight: 58.9676 kg

DRUGS (4)
  1. LUNESTA [Suspect]
     Indication: INITIAL INSOMNIA
     Dosage: 3 MG;PRN;ORAL
     Route: 048
     Dates: start: 20051101, end: 20050101
  2. BRONCHILATOR AEROSOL [Concomitant]
  3. INHALANT [Concomitant]
  4. OXYGEN [Concomitant]

REACTIONS (1)
  - DYSGEUSIA [None]
